FAERS Safety Report 24340889 (Version 4)
Quarter: 2024Q4

REPORT INFORMATION
  Report Type: Spontaneous
  Country: US (occurrence: US)
  Receive Date: 20240919
  Receipt Date: 20241028
  Transmission Date: 20250115
  Serious: Yes (Other)
  Sender: PFIZER
  Company Number: US-PFIZER INC-202400234598

PATIENT
  Age: 77 Year
  Sex: Female

DRUGS (3)
  1. TUKYSA [Suspect]
     Active Substance: TUCATINIB
     Indication: Breast cancer female
     Dosage: 300 MG (2 TABLETS OF 150 MG), 2X/DAY
     Route: 048
     Dates: end: 20240913
  2. TUKYSA [Suspect]
     Active Substance: TUCATINIB
     Dosage: 1 PILL IN THE MORNING AND 1 PILL AT NIGHT
  3. CAPECITABINE [Suspect]
     Active Substance: CAPECITABINE
     Indication: Breast cancer female
     Dosage: UNK

REACTIONS (6)
  - Cataract [Unknown]
  - Hepatic enzyme increased [Unknown]
  - Blood sodium decreased [Unknown]
  - Eating disorder [Unknown]
  - Weight decreased [Unknown]
  - Off label use [Unknown]
